FAERS Safety Report 6582177-5 (Version None)
Quarter: 2010Q1

REPORT INFORMATION
  Report Type: 
  Country: None (occurrence: None)
  Receive Date: 20100203
  Receipt Date: 20100118
  Transmission Date: 20100710
  Serious: Yes (Death)
  Sender: FDA-Public Use
  Company Number: DSA_42403_2010

PATIENT
  Age: 40 Year
  Sex: Male

DRUGS (6)
  1. BUPROPION HCL [Suspect]
     Indication: DRUG USE FOR UNKNOWN INDICATION
     Dosage: (DF ORAL)
     Route: 048
  2. OXYCODONE [Suspect]
     Indication: DRUG USE FOR UNKNOWN INDICATION
     Dosage: (DF ORAL)
     Route: 048
  3. DULOXETINE HYDROCHLORIDE [Suspect]
     Indication: DRUG USE FOR UNKNOWN INDICATION
     Dosage: (DF ORAL)
     Route: 048
  4. GABAPENTIN [Suspect]
     Indication: DRUG USE FOR UNKNOWN INDICATION
     Dosage: (DF ORAL)
     Route: 048
  5. ZOLPIDEM [Suspect]
     Indication: DRUG USE FOR UNKNOWN INDICATION
     Dosage: (DF ORAL)
     Route: 048
  6. DIPHENHYDRAMINE [Suspect]
     Indication: DRUG USE FOR UNKNOWN INDICATION
     Dosage: (DF ORAL)
     Route: 048

REACTIONS (3)
  - CARDIAC ARREST [None]
  - POISONING [None]
  - RESPIRATORY ARREST [None]
